FAERS Safety Report 5618310-9 (Version None)
Quarter: 2008Q1

REPORT INFORMATION
  Report Type: 
  Country: None (occurrence: None)
  Receive Date: 20080207
  Receipt Date: 20080130
  Transmission Date: 20080703
  Serious: Yes (Other)
  Sender: FDA-Public Use
  Company Number: US-BAYER-200812556NA

PATIENT
  Age: 46 Year
  Sex: Female

DRUGS (1)
  1. AVELOX [Suspect]
     Indication: SINUSITIS
     Dosage: UNIT DOSE: 400 MG
     Route: 048

REACTIONS (4)
  - ANAPHYLACTIC REACTION [None]
  - DYSPNOEA [None]
  - MYOCARDIAL INFARCTION [None]
  - URTICARIA [None]
